FAERS Safety Report 4835267-9 (Version None)
Quarter: 2005Q4

REPORT INFORMATION
  Report Type: 
  Country: None (occurrence: None)
  Receive Date: 20051114
  Receipt Date: 20051103
  Transmission Date: 20060501
  Serious: Yes (Death)
  Sender: FDA-Public Use
  Company Number: USA0510111742

PATIENT
  Sex: Female

DRUGS (4)
  1. XIGRIS [Suspect]
     Indication: UROSEPSIS
     Dates: start: 20051001
  2. LEVOPHED [Concomitant]
  3. ZOSYN [Concomitant]
  4. DIFLUCAN (FLUCONAZOLE) [Concomitant]

REACTIONS (1)
  - DEATH [None]
